FAERS Safety Report 8501343-2 (Version None)
Quarter: 2012Q3

REPORT INFORMATION
  Report Type: 
  Country: None (occurrence: None)
  Receive Date: 20120710
  Receipt Date: 20120622
  Transmission Date: 20120928
  Serious: No
  Sender: FDA-Public Use
  Company Number: US-ASTRAZENECA-2012SE42191

PATIENT
  Age: 66 Year
  Sex: Male
  Weight: 133 kg

DRUGS (10)
  1. FUROSEMIDE [Concomitant]
  2. TRAMADOL HCL [Concomitant]
  3. DILTIAZEM HYDROCHOLORIDE [Concomitant]
  4. POTASSIUM CHLORIDE [Concomitant]
  5. LOSARTAN POTASSIUM [Concomitant]
  6. METFORMIN HCL [Concomitant]
  7. SYMBICORT [Suspect]
     Indication: CHRONIC OBSTRUCTIVE PULMONARY DISEASE
     Route: 055
  8. ALBUTEROL [Concomitant]
  9. TIOTROPIUM [Concomitant]
  10. AMIODARONE HCL [Concomitant]

REACTIONS (1)
  - EYE IRRITATION [None]
